FAERS Safety Report 11632495 (Version 1)
Quarter: 2015Q4

REPORT INFORMATION
  Report Type: Spontaneous
  Country: US (occurrence: US)
  Receive Date: 20151015
  Receipt Date: 20151015
  Transmission Date: 20160304
  Serious: No
  Sender: FDA-Public Use
  Company Number: US-MYLANLABS-2015M1022087

PATIENT
  Sex: Female

DRUGS (2)
  1. PHENYTOIN. [Suspect]
     Active Substance: PHENYTOIN
     Dosage: UNK
  2. ASACOL [Suspect]
     Active Substance: MESALAMINE
     Dosage: UNK

REACTIONS (2)
  - Reaction to drug excipients [Not Recovered/Not Resolved]
  - Hypersensitivity [Not Recovered/Not Resolved]
